FAERS Safety Report 20201713 (Version 4)
Quarter: 2022Q1

REPORT INFORMATION
  Report Type: Spontaneous
  Country: DE (occurrence: DE)
  Receive Date: 20211217
  Receipt Date: 20220218
  Transmission Date: 20220423
  Serious: Yes (Other)
  Sender: FDA-Public Use
  Company Number: DE-ARBOR PHARMACEUTICALS, LLC-DE-2021ARB001607

PATIENT

DRUGS (6)
  1. TRIPTODUR [Suspect]
     Active Substance: TRIPTORELIN
     Indication: Prostate cancer
     Dosage: 1 VIAL/ AMPOULE, 1 BLISTER IN 1 INJECTION SYRINGE AND 2 INJECTION NEEDLES 11.25 MILLIGRAM, Q3 MONTHS
     Route: 030
     Dates: start: 20211006
  2. TRIPTODUR [Suspect]
     Active Substance: TRIPTORELIN
  3. TRIPTODUR [Suspect]
     Active Substance: TRIPTORELIN
  4. ENANTONE MONATS-DEPOT [Suspect]
     Active Substance: LEUPROLIDE ACETATE
     Indication: Product used for unknown indication
     Dosage: UNK UNK, Q4WEEKS (4 WK)
     Route: 065
     Dates: start: 202105, end: 202109
  5. ENANTONE MONATS-DEPOT [Suspect]
     Active Substance: LEUPROLIDE ACETATE
     Dosage: UNK
     Route: 065
     Dates: start: 2021, end: 20211006
  6. CANDESARTAN [Concomitant]
     Active Substance: CANDESARTAN
     Indication: Product used for unknown indication
     Dosage: 8 MG

REACTIONS (3)
  - Tumour flare [Unknown]
  - Disease progression [Unknown]
  - Prostatic specific antigen increased [Not Recovered/Not Resolved]

NARRATIVE: CASE EVENT DATE: 20210101
